FAERS Safety Report 20016806 (Version 1)
Quarter: 2021Q4

REPORT INFORMATION
  Report Type: Spontaneous
  Country: US (occurrence: None)
  Receive Date: 20211105
  Receipt Date: 20211105
  Transmission Date: 20220303
  Serious: Yes (Other)
  Sender: FDA-Public Use
  Company Number: None

PATIENT
  Age: 70 Year

DRUGS (5)
  1. HIZENTRA [Suspect]
     Active Substance: HUMAN IMMUNOGLOBULIN G
     Indication: Immunodeficiency common variable
     Dosage: FREQUENCY : EVERY OTHER WEEK;?
     Route: 058
     Dates: start: 20160301
  2. Aspirin 81mg PO three times weekly [Concomitant]
  3. Carvedilol 3.125mg PO daily [Concomitant]
  4. Omeprazole 40mg PO BID [Concomitant]
  5. Rosuvastatin 5mg PO three times weekly [Concomitant]

REACTIONS (2)
  - Infusion site erythema [None]
  - Infusion site pruritus [None]

NARRATIVE: CASE EVENT DATE: 20211028
